FAERS Safety Report 16282072 (Version 5)
Quarter: 2021Q1

REPORT INFORMATION
  Report Type: Report from Study
  Country: CA (occurrence: CA)
  Receive Date: 20190507
  Receipt Date: 20210225
  Transmission Date: 20210419
  Serious: Yes (Other)
  Sender: FDA-Public Use
  Company Number: CA-GLAXOSMITHKLINE-CA2019GSK079076

PATIENT
  Sex: Female

DRUGS (4)
  1. MEPOLIZUMAB [Suspect]
     Active Substance: MEPOLIZUMAB
     Dosage: 100 MG, Z (MONTH)
     Route: 042
  2. MEPOLIZUMAB [Suspect]
     Active Substance: MEPOLIZUMAB
     Indication: ASTHMA
     Dosage: 100 MG, Z (MONTH)
     Route: 042
     Dates: start: 20180504
  3. MEPOLIZUMAB [Suspect]
     Active Substance: MEPOLIZUMAB
     Dosage: 100 MG, Z (MONTH)
     Route: 042
  4. VENTOLIN [Suspect]
     Active Substance: ALBUTEROL SULFATE
     Indication: ASTHMA
     Dosage: AS NEEDED (PRN)

REACTIONS (9)
  - Dyspnoea [Recovering/Resolving]
  - Pneumonia [Unknown]
  - Asthma [Unknown]
  - Wheezing [Recovering/Resolving]
  - Sleep disorder due to a general medical condition [Recovering/Resolving]
  - Palpitations [Unknown]
  - Loss of personal independence in daily activities [Recovering/Resolving]
  - Malaise [Unknown]
  - Therapeutic product effect incomplete [Unknown]
